FAERS Safety Report 12779588 (Version 1)
Quarter: 2016Q3

REPORT INFORMATION
  Report Type: Report from Study
  Country: US (occurrence: US)
  Receive Date: 20160926
  Receipt Date: 20160926
  Transmission Date: 20161109
  Serious: Yes (Death, Other)
  Sender: FDA-Public Use
  Company Number: US-BAYER-2016-179328

PATIENT
  Sex: Male

DRUGS (1)
  1. BABY ASPIRIN [Suspect]
     Active Substance: ASPIRIN
     Dosage: STOPPED BABY ASPRIN FOR 10 DAYS, THEN RESTARTED IT POD2

REACTIONS (4)
  - Shock haemorrhagic [Fatal]
  - Haemorrhage [None]
  - Multiple organ dysfunction syndrome [Fatal]
  - Haematoma [None]
